FAERS Safety Report 24201839 (Version 1)
Quarter: 2024Q3

REPORT INFORMATION
  Report Type: Report from Study
  Country: CA (occurrence: CA)
  Receive Date: 20240812
  Receipt Date: 20240812
  Transmission Date: 20241016
  Serious: Yes (Other)
  Sender: JOHNSON AND JOHNSON
  Company Number: CA-JNJFOC-20240372807

PATIENT
  Age: 59 Year
  Sex: Female

DRUGS (2)
  1. REMICADE [Suspect]
     Active Substance: INFLIXIMAB
     Indication: Crohn^s disease
     Dosage: 10/2026
     Route: 041
     Dates: start: 20190220
  2. REMICADE [Suspect]
     Active Substance: INFLIXIMAB
     Indication: Colitis ulcerative
     Route: 041

REACTIONS (4)
  - Head injury [Recovering/Resolving]
  - Skin laceration [Recovering/Resolving]
  - Nasopharyngitis [Recovered/Resolved]
  - Vertigo positional [Unknown]

NARRATIVE: CASE EVENT DATE: 20240101
